FAERS Safety Report 4412306-0 (Version None)
Quarter: 2004Q3

REPORT INFORMATION
  Report Type: 
  Country: None (occurrence: None)
  Receive Date: 20040727
  Receipt Date: 20040713
  Transmission Date: 20050211
  Serious: Yes (Other)
  Sender: FDA-Public Use
  Company Number: US-JNJFOC-20040703589

PATIENT
  Age: 71 Year
  Sex: Female
  Weight: 104.3273 kg

DRUGS (2)
  1. REMICADE [Suspect]
     Indication: RHEUMATOID ARTHRITIS
     Dosage: 5 MG, 1 IN 1 DAY, INTRAVENOUS
     Route: 042
     Dates: start: 20030801
  2. PREDNISONE [Concomitant]

REACTIONS (2)
  - HERPES ZOSTER [None]
  - THROMBOSIS [None]
